FAERS Safety Report 12013509 (Version 1)
Quarter: 2016Q1

REPORT INFORMATION
  Report Type: Spontaneous
  Country: US (occurrence: US)
  Receive Date: 20160205
  Receipt Date: 20160205
  Transmission Date: 20160526
  Serious: Yes (Hospitalization, Other)
  Sender: FDA-Public Use
  Company Number: US-PFIZER INC-2016060339

PATIENT
  Age: 63 Year
  Sex: Male
  Weight: 90 kg

DRUGS (1)
  1. RAPAMUNE [Suspect]
     Active Substance: SIROLIMUS
     Indication: PROPHYLAXIS AGAINST TRANSPLANT REJECTION
     Dosage: UNK, TWO TIMES A DAY/TAKES RAPAMUNE IN THE MORNING AND IN THE EVENING AT BED TIME
     Route: 048
     Dates: start: 2009

REACTIONS (4)
  - Lymphoma [Recovered/Resolved]
  - Inappropriate schedule of drug administration [Unknown]
  - Renal failure [Not Recovered/Not Resolved]
  - Immune system disorder [Unknown]

NARRATIVE: CASE EVENT DATE: 201507
